FAERS Safety Report 18188186 (Version 1)
Quarter: 2020Q3

REPORT INFORMATION
  Report Type: Spontaneous
  Country: US (occurrence: US)
  Receive Date: 20200824
  Receipt Date: 20200824
  Transmission Date: 20201103
  Serious: Yes (Other)
  Sender: FDA-Public Use
  Company Number: US-PFIZER INC-2019066406

PATIENT
  Age: 71 Year
  Sex: Female
  Weight: 78.93 kg

DRUGS (1)
  1. REVATIO [Suspect]
     Active Substance: SILDENAFIL CITRATE
     Indication: PULMONARY HYPERTENSION
     Dosage: 40 MG (2?20 MG TABLETS), 3X/DAY FOR 90 DAYS
     Route: 048

REACTIONS (8)
  - Macular degeneration [Unknown]
  - Off label use [Unknown]
  - Glaucoma [Unknown]
  - Pulmonary oedema [Unknown]
  - Spinal compression fracture [Unknown]
  - Insomnia [Unknown]
  - Weight fluctuation [Unknown]
  - Ocular discomfort [Unknown]
